FAERS Safety Report 8507395-8 (Version None)
Quarter: 2012Q3

REPORT INFORMATION
  Report Type: 
  Country: None (occurrence: None)
  Receive Date: 20120712
  Receipt Date: 20120620
  Transmission Date: 20120928
  Serious: Yes (Hospitalization)
  Sender: FDA-Public Use
  Company Number: DE-BAXTER-2012BAX005284

PATIENT
  Weight: 92 kg

DRUGS (1)
  1. ADVATE [Suspect]
     Dosage: 3000 IE DAILY
     Route: 042
     Dates: start: 20120131, end: 20120302

REACTIONS (1)
  - PELVIC FRACTURE [None]
